FAERS Safety Report 4460338-9 (Version None)
Quarter: 2004Q3

REPORT INFORMATION
  Report Type: 
  Country: None (occurrence: None)
  Receive Date: 20040928
  Receipt Date: 20040325
  Transmission Date: 20050211
  Serious: No
  Sender: FDA-Public Use
  Company Number: US-GLAXOSMITHKLINE-A0504584A

PATIENT
  Age: 71 Year
  Sex: Female
  Weight: 62.3 kg

DRUGS (2)
  1. SEREVENT [Suspect]
     Dosage: 1PUFF TWICE PER DAY
     Route: 055
     Dates: start: 20030919
  2. ALBUTEROL [Concomitant]

REACTIONS (2)
  - PRURITUS [None]
  - RASH [None]
